FAERS Safety Report 24604350 (Version 1)
Quarter: 2024Q4

REPORT INFORMATION
  Report Type: Spontaneous
  Country: US (occurrence: US)
  Receive Date: 20241111
  Receipt Date: 20241111
  Transmission Date: 20250115
  Serious: No
  Sender: PFIZER
  Company Number: US-PFIZER INC-PV202400145060

PATIENT
  Age: 50 Year
  Sex: Male

DRUGS (1)
  1. TUKYSA [Suspect]
     Active Substance: TUCATINIB
     Dosage: 150 MG; 2 TABLETS TWICE DAILY

REACTIONS (1)
  - Neoplasm progression [Unknown]
